FAERS Safety Report 23147363 (Version 1)
Quarter: 2023Q4

REPORT INFORMATION
  Report Type: Spontaneous
  Country: None (occurrence: CN)
  Receive Date: 20231106
  Receipt Date: 20231106
  Transmission Date: 20240110
  Serious: Yes (Hospitalization)
  Sender: FDA-Public Use
  Company Number: CN-Jiangsu Hengrui Medicine Co., Ltd.-2147846

PATIENT
  Weight: 50 kg

DRUGS (7)
  1. OXALIPLATIN [Suspect]
     Active Substance: OXALIPLATIN
     Indication: Rectal cancer
     Route: 041
     Dates: start: 20230130, end: 20230404
  2. BEVACIZUMAB [Concomitant]
     Active Substance: BEVACIZUMAB
     Route: 041
     Dates: start: 20230130
  3. LEUCOVORIN CALCIUM [Concomitant]
     Active Substance: LEUCOVORIN CALCIUM
     Route: 041
     Dates: start: 20230130
  4. FLUOROURACIL [Concomitant]
     Active Substance: FLUOROURACIL
     Route: 041
  5. DEXAMETHASONE PHOSPHATE [Concomitant]
     Active Substance: DEXAMETHASONE PHOSPHATE
     Dates: start: 20230404, end: 20230404
  6. PALONOSETRON HYDROCHLORIDE [Concomitant]
     Active Substance: PALONOSETRON HYDROCHLORIDE
     Dates: start: 20230404, end: 20230404
  7. PROMETHAZINE HYDROCHLORIDE [Concomitant]
     Active Substance: PROMETHAZINE HYDROCHLORIDE
     Dates: start: 20230404, end: 20230404

REACTIONS (1)
  - Pancreatitis acute [Recovering/Resolving]

NARRATIVE: CASE EVENT DATE: 20230404
